FAERS Safety Report 10607122 (Version 1)
Quarter: 2014Q4

REPORT INFORMATION
  Report Type: Spontaneous
  Country: AR (occurrence: AR)
  Receive Date: 20141125
  Receipt Date: 20141125
  Transmission Date: 20150529
  Serious: Yes (Other)
  Sender: FDA-Public Use
  Company Number: AR-PFIZER INC-2014320736

PATIENT
  Age: 79 Year
  Sex: Female

DRUGS (1)
  1. SUTENT [Suspect]
     Active Substance: SUNITINIB MALATE
     Indication: METASTATIC RENAL CELL CARCINOMA
     Dosage: 50 MG DAILY (CYCLIC 4/2 )
     Route: 048
     Dates: start: 20140613, end: 20140924

REACTIONS (8)
  - Diarrhoea [Recovered/Resolved]
  - Amnesia [Not Recovered/Not Resolved]
  - Brain neoplasm [Recovered/Resolved]
  - Varicose vein [Not Recovered/Not Resolved]
  - Peripheral swelling [Not Recovered/Not Resolved]
  - Second primary malignancy [Recovered/Resolved]
  - Iron deficiency [Not Recovered/Not Resolved]
  - Urticaria [Recovered/Resolved]
